FAERS Safety Report 5882794-1 (Version None)
Quarter: 2008Q3

REPORT INFORMATION
  Report Type: 
  Country: None (occurrence: None)
  Receive Date: 20080913
  Receipt Date: 20080816
  Transmission Date: 20090109
  Serious: No
  Sender: FDA-Public Use
  Company Number: US-ABBOTT-08P-163-0471275-00

PATIENT
  Sex: Female

DRUGS (4)
  1. HUMIRA [Suspect]
     Indication: PSORIASIS
     Route: 058
     Dates: start: 20080301
  2. HUMIRA [Suspect]
     Route: 058
  3. PERPHENAZINE [Suspect]
     Indication: ADJUSTMENT DISORDER
     Dosage: 2MG X 5 PER DAY
     Route: 048
     Dates: end: 20080511
  4. PERPHENAZINE [Suspect]
     Indication: STRESS
     Route: 048
     Dates: start: 20080511

REACTIONS (5)
  - DEPRESSION [None]
  - DRUG INEFFECTIVE [None]
  - OROPHARYNGEAL PAIN [None]
  - PSORIASIS [None]
  - SUICIDAL IDEATION [None]
